FAERS Safety Report 19860382 (Version 1)
Quarter: 2021Q3

REPORT INFORMATION
  Report Type: Spontaneous
  Country: US (occurrence: US)
  Receive Date: 20210921
  Receipt Date: 20210921
  Transmission Date: 20211014
  Serious: No
  Sender: FDA-Public Use
  Company Number: US-CELLTRION INC.-2021US000878

PATIENT

DRUGS (2)
  1. INFLECTRA [Suspect]
     Active Substance: INFLIXIMAB-DYYB
     Dosage: 5 MG/KG, CYCLIC EVERY 8 WEEKS
     Route: 065
     Dates: start: 20210217
  2. INFLECTRA [Suspect]
     Active Substance: INFLIXIMAB-DYYB
     Indication: PSORIATIC ARTHROPATHY
     Dosage: 5 MG/KG, CYCLIC, ONCE EVERY 8 WEEKS
     Route: 042
     Dates: start: 20210104

REACTIONS (6)
  - Rash [Unknown]
  - Product dose omission issue [Not Recovered/Not Resolved]
  - Product distribution issue [Unknown]
  - Inability to afford medication [Unknown]
  - Therapy interrupted [Unknown]
  - Stress [Unknown]

NARRATIVE: CASE EVENT DATE: 20210118
